FAERS Safety Report 16715967 (Version 1)
Quarter: 2019Q3

REPORT INFORMATION
  Report Type: Spontaneous
  Country: US (occurrence: US)
  Receive Date: 20190819
  Receipt Date: 20190819
  Transmission Date: 20191005
  Serious: Yes (Other)
  Sender: FDA-Public Use
  Company Number: US-ROCHE-2373218

PATIENT
  Sex: Male
  Weight: 95.34 kg

DRUGS (2)
  1. COTELLIC [Suspect]
     Active Substance: COBIMETINIB
     Indication: MALIGNANT MELANOMA
     Dosage: 60MG DAILY FOR 21 DAYS, 7 DAYS OFF
     Route: 065
     Dates: start: 201802
  2. ZELBORAF [Suspect]
     Active Substance: VEMURAFENIB
     Indication: MALIGNANT MELANOMA
     Route: 065
     Dates: start: 201802

REACTIONS (4)
  - Neuropathy peripheral [Unknown]
  - Joint stiffness [Unknown]
  - Neoplasm [Unknown]
  - Peripheral swelling [Recovered/Resolved]
